FAERS Safety Report 17941156 (Version 1)
Quarter: 2020Q2

REPORT INFORMATION
  Report Type: Spontaneous
  Country: US (occurrence: US)
  Receive Date: 20200624
  Receipt Date: 20200624
  Transmission Date: 20200714
  Serious: Yes (Other)
  Sender: FDA-Public Use
  Company Number: None

PATIENT
  Age: 60 Year
  Sex: Male
  Weight: 62.5 kg

DRUGS (21)
  1. ACETAMINOPHEN 325MG PO Q6H PRN PAIN 1-3 [Concomitant]
     Dates: start: 20200611
  2. PRECEDEX INFUSION [Concomitant]
     Dates: start: 20200615, end: 20200619
  3. INSULIN LISPRO SLIDING SCALE 4X/D [Concomitant]
     Dates: start: 20200607
  4. FAMOTIDINE 20MG IV Q12H [Concomitant]
     Dates: start: 20200611
  5. PIPERACILLIN AND TAZOBACTAM [Concomitant]
     Active Substance: PIPERACILLIN SODIUM\TAZOBACTAM SODIUM
     Dates: start: 20200610, end: 20200615
  6. ENOXAPARIN 30MG Q12H OR 40MG Q24H [Concomitant]
     Dates: start: 20200606
  7. TOCILIZUMAB 400MG IV ONCE [Concomitant]
     Dates: start: 20200610, end: 20200610
  8. ZINC SULFATE 220MG PO DAILY [Concomitant]
     Dates: start: 20200607
  9. REMDESIVIR. [Suspect]
     Active Substance: REMDESIVIR
     Indication: COVID-19
     Dosage: ?          OTHER FREQUENCY:200MG D1, 100MG/D;?
     Route: 042
     Dates: start: 20200607, end: 20200611
  10. CEFTRIAXONE 1G IV DAILY [Concomitant]
     Dates: start: 20200606, end: 20200606
  11. LANTUS QHS [Concomitant]
     Dates: start: 20200607
  12. VIT C 1500MG Q6H, B1 200MG IV Q12H [Concomitant]
     Dates: start: 20200606, end: 20200608
  13. DEXAMETHASONE 6MG IV/PO DAILY [Concomitant]
     Dates: start: 20200620
  14. FENTANYL INFUSION [Concomitant]
     Active Substance: FENTANYL
     Dates: start: 20200609, end: 20200618
  15. HYDRALAZINE 20MG IV Q4H PRN [Concomitant]
     Dates: start: 20200606
  16. VECURONIUM 10MG IV Q1H PRN VENT DYSSYNCHRONY [Concomitant]
     Dates: start: 20200609, end: 20200619
  17. FUROSEMIDE. [Concomitant]
     Active Substance: FUROSEMIDE
     Dates: start: 20200610, end: 20200615
  18. AZITHROMYCIN 500MG IV DAILY [Concomitant]
     Dates: start: 20200606, end: 20200613
  19. DILTIAZEM INFUSION [Concomitant]
     Dates: start: 20200607, end: 20200609
  20. NOREPINEPHRINE INFUSION [Concomitant]
     Dates: start: 20200609, end: 20200615
  21. PROPOFOL INFUSION [Concomitant]
     Active Substance: PROPOFOL
     Dates: start: 20200609, end: 20200618

REACTIONS (6)
  - Oxygen saturation decreased [None]
  - SARS-CoV-2 test positive [None]
  - Alanine aminotransferase increased [None]
  - Acute respiratory failure [None]
  - Pneumonia [None]
  - Hypoxia [None]

NARRATIVE: CASE EVENT DATE: 20200608
